FAERS Safety Report 4915725-9 (Version None)
Quarter: 2006Q1

REPORT INFORMATION
  Report Type: 
  Country: None (occurrence: None)
  Receive Date: 20060217
  Receipt Date: 20060208
  Transmission Date: 20060701
  Serious: Yes (Other)
  Sender: FDA-Public Use
  Company Number: SE-JNJFOC-20060202218

PATIENT
  Sex: Female

DRUGS (4)
  1. IPREN 400 MG [Suspect]
     Route: 048
  2. IPREN 400 MG [Suspect]
     Indication: BACK PAIN
     Dosage: EVERY DAY
     Route: 048
  3. IPREN 400 MG [Suspect]
     Indication: HEADACHE
     Dosage: 400 MG, THREE TIMES A DAY SOMETIMES 600 MG ALL AT ONCE
     Route: 048
  4. LEVAXIN [Concomitant]

REACTIONS (4)
  - ANTEPARTUM HAEMORRHAGE [None]
  - DRUG EXPOSURE DURING PREGNANCY [None]
  - URINARY TRACT INFECTION [None]
  - UTERINE HAEMATOMA [None]
